FAERS Safety Report 9700418 (Version 1)
Quarter: 2013Q4

REPORT INFORMATION
  Report Type: Spontaneous
  Country: TR (occurrence: TR)
  Receive Date: 20131121
  Receipt Date: 20131121
  Transmission Date: 20140711
  Serious: Yes (Hospitalization)
  Sender: FDA-Public Use
  Company Number: TR-JNJFOC-20131110585

PATIENT
  Age: 57 Year
  Sex: Female

DRUGS (2)
  1. SIMPONI [Suspect]
     Indication: ANKYLOSING SPONDYLITIS
     Dosage: TREATMENT STARTED 3 MONTHS PRIOR TO THE REPORT
     Route: 058
     Dates: start: 2013, end: 20131108
  2. ENDOL [Concomitant]
     Route: 065

REACTIONS (1)
  - Pulmonary tuberculosis [Not Recovered/Not Resolved]
